FAERS Safety Report 9276677 (Version 4)
Quarter: 2013Q3

REPORT INFORMATION
  Report Type: Spontaneous
  Country: US (occurrence: None)
  Receive Date: 20130501
  Receipt Date: 20130920
  Transmission Date: 20140515
  Serious: Yes (Other)
  Sender: FDA-Public Use
  Company Number: ADR-2013-00738

PATIENT
  Sex: Female

DRUGS (6)
  1. LIORESAL INTRATHECAL (BACLOFEN INJECTION) [Suspect]
     Indication: MUSCLE SPASTICITY
     Dosage: 240.1 MCG/DAY: SEE B5
  2. MORPHINE [Suspect]
     Dosage: 1.201 MG/DAY; SEE B5
  3. CLOMIPHENE [Concomitant]
  4. CLONIDINE [Concomitant]
  5. OXYCODONE [Concomitant]
  6. PROVIGIL [Concomitant]

REACTIONS (28)
  - Device leakage [None]
  - Surgery [None]
  - Thrombosis [None]
  - Swelling [None]
  - Medical device complication [None]
  - Seroma [None]
  - Vomiting [None]
  - Hypocalcaemia [None]
  - Crying [None]
  - Weight increased [None]
  - Fatigue [None]
  - Drug withdrawal syndrome [None]
  - Peroneal nerve palsy [None]
  - No therapeutic response [None]
  - Joint swelling [None]
  - Neck pain [None]
  - Coccydynia [None]
  - Intracranial hypotension [None]
  - Insomnia [None]
  - Gait disturbance [None]
  - Memory impairment [None]
  - Peritonitis [None]
  - Pain in extremity [None]
  - Fibromyalgia [None]
  - Change of bowel habit [None]
  - Restlessness [None]
  - Psychomotor hyperactivity [None]
  - Burning sensation [None]
